FAERS Safety Report 13935438 (Version 1)
Quarter: 2017Q3

REPORT INFORMATION
  Report Type: Spontaneous
  Country: US (occurrence: US)
  Receive Date: 20170901
  Receipt Date: 20170901
  Transmission Date: 20171127
  Serious: Yes (Other)
  Sender: FDA-Public Use
  Company Number: None

PATIENT
  Age: 48 Year
  Sex: Female
  Weight: 74.25 kg

DRUGS (1)
  1. KYBELLA [Suspect]
     Active Substance: DEOXYCHOLIC ACID
     Indication: SKIN DISORDER
     Dates: start: 20161130, end: 20161130

REACTIONS (2)
  - Dysphagia [None]
  - Sensory disturbance [None]

NARRATIVE: CASE EVENT DATE: 20161130
